FAERS Safety Report 16987123 (Version 2)
Quarter: 2019Q4

REPORT INFORMATION
  Report Type: Spontaneous
  Country: US (occurrence: US)
  Receive Date: 20191102
  Receipt Date: 20191127
  Transmission Date: 20200122
  Serious: Yes (Life-Threatening, Hospitalization, Other)
  Sender: FDA-Public Use
  Company Number: US-AUROBINDO-AUR-APL-2019-069895

PATIENT
  Age: 26 Year
  Sex: Female

DRUGS (1)
  1. DIPHENHYDRAMINE. [Suspect]
     Active Substance: DIPHENHYDRAMINE
     Indication: PRODUCT USED FOR UNKNOWN INDICATION
     Dosage: 5000 MILLIGRAM
     Route: 065

REACTIONS (10)
  - Suicide attempt [Recovered/Resolved]
  - Seizure [Recovered/Resolved]
  - Hypotension [Recovered/Resolved]
  - Overdose [Recovered/Resolved]
  - Tachycardia [Recovered/Resolved]
  - Intentional overdose [Recovered/Resolved]
  - Delirium [Recovered/Resolved]
  - Pyrexia [Recovered/Resolved]
  - Electrocardiogram QT prolonged [Recovered/Resolved]
  - Toxicity to various agents [Recovered/Resolved]
